FAERS Safety Report 9761033 (Version 2)
Quarter: 2014Q2

REPORT INFORMATION
  Report Type: Spontaneous
  Country: US (occurrence: US)
  Receive Date: 20131216
  Receipt Date: 20140526
  Transmission Date: 20141212
  Serious: No
  Sender: FDA-Public Use
  Company Number: US-PFIZER INC-2013356177

PATIENT
  Sex: Female

DRUGS (8)
  1. ARTHROTEC [Suspect]
     Dosage: UNK
  2. PROMETHAZINE HCL [Suspect]
     Dosage: UNK
  3. METAMUCIL [Suspect]
     Dosage: UNK
  4. ERYTHROMYCIN ETHYLSUCCINATE [Suspect]
     Dosage: UNK
  5. BUSPAR [Suspect]
     Dosage: UNK
  6. CODEINE [Suspect]
     Dosage: UNK
  7. LEXAPRO [Suspect]
     Dosage: UNK
  8. ULTRACET [Suspect]
     Dosage: UNK

REACTIONS (1)
  - Drug hypersensitivity [Unknown]
